FAERS Safety Report 13466300 (Version 3)
Quarter: 2018Q1

REPORT INFORMATION
  Report Type: Report from Study
  Country: NL (occurrence: NL)
  Receive Date: 20170421
  Receipt Date: 20180102
  Transmission Date: 20180508
  Serious: Yes (Hospitalization, Other)
  Sender: FDA-Public Use
  Company Number: NL-AMGEN-NLDSL2017060284

PATIENT
  Age: 88 Year
  Sex: Female

DRUGS (2)
  1. ARANESP [Suspect]
     Active Substance: DARBEPOETIN ALFA
     Indication: MYELODYSPLASTIC SYNDROME
     Dosage: 150 MUG (IN 0.3 ML, AS 500 MCG/ML), Q4WK
     Route: 058
  2. ARANESP [Suspect]
     Active Substance: DARBEPOETIN ALFA
     Dosage: 150 MUG (IN 0.3 ML, AS 500 MCG/ML), Q3WK
     Route: 058

REACTIONS (3)
  - Hospitalisation [Unknown]
  - Haemorrhage urinary tract [Unknown]
  - Off label use [Unknown]

NARRATIVE: CASE EVENT DATE: 20170415
